FAERS Safety Report 9316434 (Version 1)
Quarter: 2013Q2

REPORT INFORMATION
  Report Type: Spontaneous
  Country: US (occurrence: None)
  Receive Date: 20130522
  Receipt Date: 20130522
  Transmission Date: 20140414
  Serious: Yes (Hospitalization)
  Sender: FDA-Public Use
  Company Number: 2013-001558

PATIENT
  Age: 80 Year
  Sex: Female

DRUGS (2)
  1. ASACOL (MESALAZINE) MODIFIED-RELEASE TABLET, 400 MG [Suspect]
     Indication: CROHN^S DISEASE
     Dosage: THREE TABLETS TWICE DAILY
     Route: 048
     Dates: start: 1988
  2. LOPERAMIDE (LOPERAMIDE) [Concomitant]

REACTIONS (3)
  - Large intestine perforation [None]
  - Post procedural complication [None]
  - Blister [None]
